FAERS Safety Report 7032308-8 (Version None)
Quarter: 2010Q4

REPORT INFORMATION
  Report Type: 
  Country: None (occurrence: None)
  Receive Date: 20101007
  Receipt Date: 20100528
  Transmission Date: 20110411
  Serious: Yes (Hospitalization, Disabling)
  Sender: FDA-Public Use
  Company Number: PL-BRISTOL-MYERS SQUIBB COMPANY-15131428

PATIENT
  Age: 72 Year
  Sex: Male
  Weight: 82 kg

DRUGS (3)
  1. CETUXIMAB [Suspect]
     Indication: NON-SMALL CELL LUNG CANCER
     Dosage: INF-5;RECENT INF:21MAY2010 CETUXIMAB 5MG/ML
     Route: 042
     Dates: start: 20100416, end: 20100521
  2. CISPLATIN [Suspect]
     Indication: NON-SMALL CELL LUNG CANCER
     Dosage: RECENT INF:06MAY10(2ND)
     Route: 042
     Dates: start: 20100416, end: 20100506
  3. GEMCITABINE [Suspect]
     Indication: NON-SMALL CELL LUNG CANCER
     Dosage: RECENT INF:14MAY10 (4TH)
     Route: 042
     Dates: start: 20100416, end: 20100514

REACTIONS (1)
  - DEEP VEIN THROMBOSIS [None]
